FAERS Safety Report 19011900 (Version 1)
Quarter: 2021Q1

REPORT INFORMATION
  Report Type: Spontaneous
  Country: US (occurrence: US)
  Receive Date: 20210315
  Receipt Date: 20210315
  Transmission Date: 20210420
  Serious: No
  Sender: FDA-Public Use
  Company Number: US-PERRIGO-20US002284

PATIENT
  Age: 21 Year
  Sex: Female
  Weight: 60.77 kg

DRUGS (3)
  1. SCOPOLAMINE [Suspect]
     Active Substance: SCOPOLAMINE
     Indication: NAUSEA
     Dosage: 1 MG, EVERY 3 DAYS
     Route: 062
     Dates: start: 20200117, end: 20200123
  2. MIRALAX [Concomitant]
     Active Substance: POLYETHYLENE GLYCOL 3350
     Indication: CONSTIPATION
     Dosage: UNKNOWN, PRN
     Route: 048
  3. SCOPOLAMINE [Suspect]
     Active Substance: SCOPOLAMINE
     Indication: VOMITING

REACTIONS (19)
  - Mydriasis [Recovered/Resolved]
  - Urinary retention [Recovered/Resolved]
  - Agitation [Recovered/Resolved]
  - Somnolence [Recovered/Resolved]
  - Fatigue [Recovered/Resolved]
  - Feeling abnormal [Recovered/Resolved]
  - Speech disorder [Recovered/Resolved]
  - Headache [Recovered/Resolved]
  - Paranoia [Recovered/Resolved]
  - Coordination abnormal [Recovered/Resolved]
  - Dry mouth [Recovered/Resolved]
  - Thirst [Recovered/Resolved]
  - Oropharyngeal pain [Recovered/Resolved]
  - Confusional state [Recovered/Resolved]
  - Dizziness [Recovered/Resolved]
  - Therapeutic product effect incomplete [Unknown]
  - Diplopia [Recovered/Resolved]
  - Asthenopia [Recovered/Resolved]
  - Vision blurred [Recovered/Resolved]

NARRATIVE: CASE EVENT DATE: 202001
